FAERS Safety Report 18334029 (Version 2)
Quarter: 2022Q1

REPORT INFORMATION
  Report Type: Spontaneous
  Country: IN (occurrence: IN)
  Receive Date: 20201001
  Receipt Date: 20220118
  Transmission Date: 20220423
  Serious: Yes (Death, Other)
  Sender: FDA-Public Use
  Company Number: IN-PFIZER INC-2019307757

PATIENT
  Age: 69 Year
  Sex: Male
  Weight: 58.5 kg

DRUGS (1)
  1. SUTENT [Suspect]
     Active Substance: SUNITINIB MALATE
     Indication: Metastatic renal cell carcinoma
     Dosage: 50 MG, CYCLIC (ONCE A DAY, 2 WEEKS ON AND 1 WEEK OFF)
     Route: 048
     Dates: start: 20190629, end: 20210428

REACTIONS (6)
  - Neoplasm progression [Fatal]
  - Brain oedema [Unknown]
  - Skin reaction [Unknown]
  - Vomiting [Unknown]
  - Headache [Unknown]
  - Blood cholinesterase increased [Unknown]
